FAERS Safety Report 18092248 (Version 3)
Quarter: 2020Q3

REPORT INFORMATION
  Report Type: Spontaneous
  Country: US (occurrence: US)
  Receive Date: 20200730
  Receipt Date: 20200826
  Transmission Date: 20201103
  Serious: Yes (Life-Threatening, Hospitalization)
  Sender: FDA-Public Use
  Company Number: US-TEVA-2020-US-1806012

PATIENT
  Age: 16 Year
  Sex: Male

DRUGS (1)
  1. FENTANYL. [Suspect]
     Active Substance: FENTANYL
     Indication: PRODUCT USED FOR UNKNOWN INDICATION
     Dosage: INGESTION OF APPROXIMATELY 3 TO 4 FAKE OXYCODONE 10 TO 325 MG PILLS LACED WITH FENTANYL
     Route: 048

REACTIONS (9)
  - Unresponsive to stimuli [Recovering/Resolving]
  - Extensor plantar response [Not Recovered/Not Resolved]
  - Overdose [Unknown]
  - Central nervous system lesion [Unknown]
  - Brain injury [Unknown]
  - Blood creatine phosphokinase increased [Recovered/Resolved]
  - Leukoencephalopathy [Unknown]
  - Respiratory disorder [Recovered/Resolved]
  - Counterfeit product administered [Unknown]
